FAERS Safety Report 9196412 (Version 1)
Quarter: 2013Q1

REPORT INFORMATION
  Report Type: Spontaneous
  Country: US (occurrence: None)
  Receive Date: 20120703
  Receipt Date: 20120703
  Transmission Date: 20140127
  Serious: No
  Sender: FDA-Public Use
  Company Number: PHEH2012US008932

PATIENT
  Age: 59 Year
  Sex: Female

DRUGS (5)
  1. GILENYA [Suspect]
     Indication: MULTIPLE SCLEROSIS
     Route: 048
     Dates: start: 20120312
  2. FAMPRIDINE (FAMPRIDINE) [Concomitant]
  3. GABAPENTIN (GABAPENTIN) [Concomitant]
  4. AMITRIPTYLINE (AMITRIPTYLINE) [Concomitant]
  5. NORVASC (AMLODIPINE BESILATE) [Concomitant]

REACTIONS (3)
  - Abdominal distension [None]
  - Abdominal discomfort [None]
  - Vision blurred [None]
